FAERS Safety Report 5990108-1 (Version None)
Quarter: 2008Q4

REPORT INFORMATION
  Report Type: 
  Country: None (occurrence: None)
  Receive Date: 20081211
  Receipt Date: 20081208
  Transmission Date: 20090506
  Serious: Yes (Hospitalization)
  Sender: FDA-Public Use
  Company Number: NZ-BRISTOL-MYERS SQUIBB COMPANY-14404537

PATIENT
  Age: 55 Year
  Sex: Male

DRUGS (3)
  1. EFAVIRENZ TABS [Suspect]
     Indication: HIV INFECTION
     Route: 065
  2. KALETRA [Concomitant]
  3. TRUVADA [Concomitant]

REACTIONS (9)
  - ANOREXIA [None]
  - CHILLS [None]
  - DIARRHOEA [None]
  - DYSPNOEA [None]
  - LETHARGY [None]
  - PLEURITIC PAIN [None]
  - PYREXIA [None]
  - TUBULOINTERSTITIAL NEPHRITIS [None]
  - URINE OUTPUT DECREASED [None]
